FAERS Safety Report 8592882 (Version 4)
Quarter: 2014Q1

REPORT INFORMATION
  Report Type: Spontaneous
  Country: US (occurrence: US)
  Receive Date: 20120604
  Receipt Date: 20140109
  Transmission Date: 20141002
  Serious: Yes (Hospitalization, Other)
  Sender: FDA-Public Use
  Company Number: US-ASTRAZENECA-2012SE34642

PATIENT
  Age: 59 Year
  Sex: Female

DRUGS (20)
  1. NEXIUM [Suspect]
     Route: 048
     Dates: start: 20050921
  2. BUSPIRONE HCL [Concomitant]
     Dates: start: 20061003
  3. CYCLOBENZAPRINE [Concomitant]
     Dates: start: 20061003
  4. NAPROXEN [Concomitant]
     Dates: start: 20061101
  5. HYDROCHLOROTHIAZIDE [Concomitant]
     Dates: start: 20061101
  6. ZYRTEC [Concomitant]
     Dates: start: 20061101
  7. INDERAL LA [Concomitant]
     Dates: start: 20061101
  8. CELEBREX [Concomitant]
     Dates: start: 20061227
  9. HYDROXYZINE PAM [Concomitant]
     Dates: start: 20070216
  10. BENZONATATE [Concomitant]
     Dates: start: 20070219
  11. SYNTHROID [Concomitant]
     Dates: start: 20090423
  12. MELOXICAM [Concomitant]
     Dates: start: 20091103
  13. VITAMIN D [Concomitant]
     Dosage: 50000 UNITS
     Dates: start: 20100115
  14. LISINOPRIL [Concomitant]
     Dates: start: 20111021
  15. ESTRADIOL [Concomitant]
  16. PROGESTERON [Concomitant]
  17. OMEPRAZOLE [Concomitant]
     Route: 048
     Dates: start: 20131010
  18. CALCIUM [Concomitant]
     Route: 048
     Dates: start: 20131010
  19. VITAMIN B12 [Concomitant]
     Dosage: OTC DAILY
     Dates: start: 20130226
  20. VITAMIN D3 [Concomitant]
     Route: 048
     Dates: start: 20130226

REACTIONS (7)
  - Thyroid disorder [Unknown]
  - Hypoparathyroidism [Unknown]
  - Hypothyroidism [Unknown]
  - Osteoporosis [Unknown]
  - Multiple fractures [Unknown]
  - Arthritis [Unknown]
  - Osteoarthritis [Unknown]
